FAERS Safety Report 9232232 (Version 1)
Quarter: 2013Q2

REPORT INFORMATION
  Report Type: Spontaneous
  Country: JP (occurrence: JP)
  Receive Date: 20130415
  Receipt Date: 20130415
  Transmission Date: 20140414
  Serious: Yes (Hospitalization)
  Sender: FDA-Public Use
  Company Number: JP-MYLANLABS-2013S1006754

PATIENT
  Age: 70 Year
  Sex: Female
  Weight: 52.76 kg

DRUGS (12)
  1. CARBOPLATIN [Suspect]
     Indication: OVARIAN CANCER
     Route: 041
     Dates: start: 20121115, end: 20121115
  2. CARBOPLATIN [Suspect]
     Indication: OVARIAN CANCER
     Route: 041
     Dates: start: 20121228, end: 20121228
  3. TAXOL [Concomitant]
     Indication: OVARIAN CANCER
     Route: 041
     Dates: start: 20121228
  4. LACTEC /00490001/ [Concomitant]
     Indication: PRODUCT USED FOR UNKNOWN INDICATION
     Route: 041
  5. KYTRIL [Concomitant]
     Indication: PRODUCT USED FOR UNKNOWN INDICATION
  6. FAMOTIDINE [Concomitant]
     Indication: PRODUCT USED FOR UNKNOWN INDICATION
     Route: 042
  7. DEXART [Concomitant]
     Indication: PRODUCT USED FOR UNKNOWN INDICATION
     Route: 042
  8. EDIROL [Concomitant]
     Indication: PRODUCT USED FOR UNKNOWN INDICATION
     Route: 048
  9. URSO /02213401/ [Concomitant]
     Indication: PRODUCT USED FOR UNKNOWN INDICATION
     Route: 048
     Dates: start: 20121221, end: 20130103
  10. RESTAMIN /00000401/ [Concomitant]
     Indication: PRODUCT USED FOR UNKNOWN INDICATION
     Route: 048
  11. EMEND /01627301/ [Concomitant]
     Indication: PRODUCT USED FOR UNKNOWN INDICATION
     Route: 048
  12. TAKEPRON [Concomitant]
     Indication: PRODUCT USED FOR UNKNOWN INDICATION
     Route: 048

REACTIONS (2)
  - Dyspnoea [Recovered/Resolved]
  - Blood pressure decreased [Recovered/Resolved]
